FAERS Safety Report 5195937-2 (Version None)
Quarter: 2006Q4

REPORT INFORMATION
  Report Type: 
  Country: None (occurrence: None)
  Receive Date: 20061227
  Receipt Date: 20061227
  Transmission Date: 20070319
  Serious: Yes (Hospitalization)
  Sender: FDA-Public Use
  Company Number: None

PATIENT
  Sex: Male

DRUGS (1)
  1. ISOVUE-128 [Suspect]
     Indication: EPIDURAL ANAESTHESIA
     Dosage: 1 ONCE IV
     Route: 042
     Dates: start: 20061020, end: 20061020

REACTIONS (3)
  - CHILLS [None]
  - DYSPNOEA [None]
  - URTICARIA [None]
